FAERS Safety Report 18265209 (Version 1)
Quarter: 2020Q3

REPORT INFORMATION
  Report Type: Spontaneous
  Country: US (occurrence: US)
  Receive Date: 20200914
  Receipt Date: 20200914
  Transmission Date: 20201103
  Serious: Yes (Other)
  Sender: FDA-Public Use
  Company Number: US-PURDUE-USA-2020-0166066

PATIENT
  Sex: Male

DRUGS (2)
  1. OXYCODONE/ ACETAMINOPHEN TABLETS [Suspect]
     Active Substance: ACETAMINOPHEN\OXYCODONE HYDROCHLORIDE
     Indication: PRODUCT USED FOR UNKNOWN INDICATION
     Dosage: 5/325 MG, UNK
     Route: 048
  2. HYDROCODONE BITARTRATE AND ACETAMINOPHEN [Suspect]
     Active Substance: ACETAMINOPHEN\HYDROCODONE BITARTRATE
     Indication: PAIN
     Dosage: 1.5 TABLET OF 5/500 MG, 4 HOURS
     Route: 048

REACTIONS (20)
  - Unevaluable event [Unknown]
  - Hyperlipidaemia [Unknown]
  - Aortic arteriosclerosis [Unknown]
  - Hypertension [Unknown]
  - Osteoarthritis [Unknown]
  - Spondylolisthesis [Unknown]
  - Hepatic steatosis [Unknown]
  - Antisocial behaviour [Unknown]
  - Metastatic lymphoma [Unknown]
  - Prostate cancer [Unknown]
  - Glucose tolerance impaired [Unknown]
  - Ingrowing nail [Unknown]
  - Emotional distress [Unknown]
  - Depression [Unknown]
  - Drug dependence [Unknown]
  - Anxiety [Unknown]
  - Loss of consciousness [Unknown]
  - Pulmonary mass [Unknown]
  - Benign prostatic hyperplasia [Unknown]
  - Orthostatic hypotension [Unknown]

NARRATIVE: CASE EVENT DATE: 20160712
